FAERS Safety Report 5109169-7 (Version None)
Quarter: 2006Q3

REPORT INFORMATION
  Report Type: 
  Country: None (occurrence: None)
  Receive Date: 20060918
  Receipt Date: 20060829
  Transmission Date: 20061208
  Serious: Yes (Other)
  Sender: FDA-Public Use
  Company Number: US200603005058

PATIENT
  Age: 55 Year
  Sex: Female
  Weight: 63.5 kg

DRUGS (7)
  1. CYMBALTA [Suspect]
     Indication: DEPRESSION
     Dosage: SEE IMAGE
     Dates: start: 20050401, end: 20060101
  2. TRAZODONE HCL [Concomitant]
  3. ESTRADIOL [Concomitant]
  4. NAPROXEN [Concomitant]
  5. FIORICET [Concomitant]
  6. GLUCOSAMINE W/CHONDROITIN (CHONDROITIN SULFATE, GLUCOSAMINE) [Concomitant]
  7. LEXAPRO [Concomitant]

REACTIONS (3)
  - BUNDLE BRANCH BLOCK RIGHT [None]
  - VENTRICULAR EXTRASYSTOLES [None]
  - VENTRICULAR TACHYCARDIA [None]
